FAERS Safety Report 24230673 (Version 1)
Quarter: 2024Q3

REPORT INFORMATION
  Report Type: Spontaneous
  Country: EG (occurrence: EG)
  Receive Date: 20240821
  Receipt Date: 20240821
  Transmission Date: 20241016
  Serious: Yes (Hospitalization, Other)
  Sender: NOVO NORDISK
  Company Number: EG-NOVOPROD-1268993

PATIENT
  Age: 636 Month
  Sex: Male
  Weight: 105 kg

DRUGS (4)
  1. GLIPTUS [Concomitant]
     Indication: Diabetes mellitus
     Dosage: BID  AM AND PM
     Route: 048
  2. .ALPHA.-LIPOIC ACID [Concomitant]
     Active Substance: .ALPHA.-LIPOIC ACID
     Indication: Neuropathy peripheral
     Dosage: UNK
     Route: 048
  3. GAPTIN [Concomitant]
     Indication: Neuropathy peripheral
     Dosage: 400 BID (UNITS NOT REPORTED) AM AND PM
     Route: 048
  4. INSULIN ASPART [Suspect]
     Active Substance: INSULIN ASPART
     Indication: Diabetes mellitus
     Dosage: 90 IU, QD (50 IU AM  /40 IU PM)
     Route: 058

REACTIONS (2)
  - Coronary arterial stent insertion [Unknown]
  - Hyperglycaemia [Unknown]

NARRATIVE: CASE EVENT DATE: 20200101
